FAERS Safety Report 7733837-1 (Version None)
Quarter: 2011Q3

REPORT INFORMATION
  Report Type: 
  Country: None (occurrence: None)
  Receive Date: 20110907
  Receipt Date: 20110830
  Transmission Date: 20111222
  Serious: Yes (Death, Hospitalization)
  Sender: FDA-Public Use
  Company Number: ZA-CELGENEUS-143-C5013-11082618

PATIENT
  Sex: Male
  Weight: 90 kg

DRUGS (8)
  1. LENALIDOMIDE [Suspect]
     Indication: PROSTATE CANCER
     Dosage: 25 MILLIGRAM
     Route: 048
     Dates: start: 20110711
  2. DOCETAXEL [Suspect]
     Indication: PROSTATE CANCER
     Dosage: 150 MILLIGRAM
     Route: 065
     Dates: start: 20110711
  3. VERAPAMIL [Concomitant]
     Indication: HYPERTENSION
     Route: 048
     Dates: start: 20110101
  4. LENALIDOMIDE [Suspect]
     Dosage: 25 MILLIGRAM
     Route: 048
     Dates: start: 20110823, end: 20110829
  5. GLUCOPHAGE [Concomitant]
     Indication: DIABETES MELLITUS
     Dosage: 2000 MILLIGRAM
     Route: 048
     Dates: start: 19910101
  6. SIMVASTATIN [Concomitant]
     Route: 048
     Dates: start: 19910101
  7. ASPIRIN [Concomitant]
     Indication: PROPHYLAXIS
     Route: 048
     Dates: start: 20110701
  8. PREDNISONE [Suspect]
     Indication: PROSTATE CANCER
     Dosage: 10 MILLIGRAM
     Route: 065
     Dates: start: 20110711

REACTIONS (5)
  - VOMITING [None]
  - SEPSIS [None]
  - NAUSEA [None]
  - FEBRILE NEUTROPENIA [None]
  - HYPOGLYCAEMIA [None]
